FAERS Safety Report 23411040 (Version 1)
Quarter: 2024Q1

REPORT INFORMATION
  Report Type: Spontaneous
  Country: US (occurrence: None)
  Receive Date: 20240117
  Receipt Date: 20240117
  Transmission Date: 20240409
  Serious: Yes (Hospitalization)
  Sender: FDA-Public Use
  Company Number: None

PATIENT
  Age: 61 Year
  Sex: Male
  Weight: 105.7 kg

DRUGS (4)
  1. FLUOROURACIL [Suspect]
     Active Substance: FLUOROURACIL
     Dates: end: 20231227
  2. IRINOTECAN [Suspect]
     Active Substance: IRINOTECAN
     Dates: end: 20231227
  3. LEUCOVORIN CALCIUM [Suspect]
     Active Substance: LEUCOVORIN CALCIUM
     Dates: end: 20231227
  4. OXALIPLATIN [Suspect]
     Active Substance: OXALIPLATIN
     Dates: end: 20231227

REACTIONS (8)
  - Subclavian vein thrombosis [None]
  - Vena cava thrombosis [None]
  - Jugular vein thrombosis [None]
  - Complication associated with device [None]
  - Pyrexia [None]
  - White blood cell count decreased [None]
  - Haemoglobin decreased [None]
  - Dysphagia [None]

NARRATIVE: CASE EVENT DATE: 20240108
